FAERS Safety Report 9279229 (Version 1)
Quarter: 2013Q2

REPORT INFORMATION
  Report Type: Spontaneous
  Country: US (occurrence: US)
  Receive Date: 20130508
  Receipt Date: 20130508
  Transmission Date: 20140414
  Serious: Yes (Hospitalization)
  Sender: FDA-Public Use
  Company Number: CHPA2013US007899

PATIENT
  Age: 62 Year
  Sex: Female

DRUGS (6)
  1. PARACETAMOL [Suspect]
     Dosage: UNK, UNK
     Route: 048
  2. FUROSEMIDE [Suspect]
     Dosage: 40 MG, QD
     Route: 048
  3. FUROSEMIDE [Suspect]
     Dosage: 2320 MG, ONCE/SINGLE
     Route: 048
  4. CLONIDINE [Suspect]
     Indication: HOT FLUSH
     Dosage: 0.2 MG, PRN
     Route: 048
  5. CLONIDINE [Suspect]
     Dosage: 8.4 MG, ONCE/SINGLE
     Route: 048
  6. TAMOXIFEN [Concomitant]
     Dosage: 10 MG, BID
     Route: 048

REACTIONS (6)
  - Suicide attempt [Unknown]
  - Toxicity to various agents [Unknown]
  - Loss of consciousness [Unknown]
  - Hypothermia [Recovering/Resolving]
  - Hypotension [Recovering/Resolving]
  - Bradycardia [Recovering/Resolving]
